FAERS Safety Report 9456246 (Version 1)
Quarter: 2013Q3

REPORT INFORMATION
  Report Type: Spontaneous
  Country: US (occurrence: None)
  Receive Date: 20130812
  Receipt Date: 20130812
  Transmission Date: 20140515
  Serious: No
  Sender: FDA-Public Use
  Company Number: None

PATIENT
  Age: 74 Year
  Sex: Male
  Weight: 81.65 kg

DRUGS (6)
  1. ANAGRELIDE [Suspect]
     Indication: PLATELET COUNT INCREASED
     Route: 048
  2. HYDROXYUREA [Concomitant]
  3. ASPIRIN [Concomitant]
  4. COLACE [Concomitant]
  5. MAGNESIUM [Concomitant]
  6. PROSTA CAID [Concomitant]

REACTIONS (1)
  - Pain in extremity [None]
